FAERS Safety Report 25171604 (Version 4)
Quarter: 2025Q2

REPORT INFORMATION
  Report Type: Spontaneous
  Country: US (occurrence: US)
  Receive Date: 20250408
  Receipt Date: 20250520
  Transmission Date: 20250717
  Serious: Yes (Hospitalization, Disabling)
  Sender: BAUSCH AND LOMB
  Company Number: US-BAUSCH-BL-2025-004510

PATIENT
  Age: 83 Year
  Sex: Male

DRUGS (10)
  1. MYSOLINE [Suspect]
     Active Substance: PRIMIDONE
     Indication: Epilepsy
     Route: 065
  2. MYSOLINE [Suspect]
     Active Substance: PRIMIDONE
     Route: 065
  3. MYSOLINE [Suspect]
     Active Substance: PRIMIDONE
     Dosage: MORNING (UNKNOWN DOSE) AND EVENING (DOSE IS 4 OF THE 50MG TABLETS)
     Route: 065
  4. MYSOLINE [Suspect]
     Active Substance: PRIMIDONE
     Route: 065
  5. MYSOLINE [Suspect]
     Active Substance: PRIMIDONE
     Dosage: 450 MG ONCE IN A DAY
     Route: 065
  6. MYSOLINE [Suspect]
     Active Substance: PRIMIDONE
     Route: 065
  7. MYSOLINE [Suspect]
     Active Substance: PRIMIDONE
     Route: 065
  8. MYSOLINE [Suspect]
     Active Substance: PRIMIDONE
     Route: 065
  9. ALLOPURINOL [Concomitant]
     Active Substance: ALLOPURINOL
     Indication: Product used for unknown indication
     Route: 065
  10. LASIX [Concomitant]
     Active Substance: FUROSEMIDE
     Indication: Product used for unknown indication
     Route: 065

REACTIONS (4)
  - Muscular weakness [Recovered/Resolved]
  - Dysphemia [Recovered/Resolved]
  - Balance disorder [Recovered/Resolved]
  - Product availability issue [Unknown]
